FAERS Safety Report 9727373 (Version 2)
Quarter: 2013Q4

REPORT INFORMATION
  Report Type: Spontaneous
  Country: US (occurrence: US)
  Receive Date: 20131203
  Receipt Date: 20131213
  Transmission Date: 20140711
  Serious: No
  Sender: FDA-Public Use
  Company Number: US-PFIZER INC-2013344917

PATIENT
  Age: 57 Year
  Sex: Male
  Weight: 74.38 kg

DRUGS (2)
  1. LYRICA [Suspect]
     Indication: DIABETIC NEUROPATHY
     Dosage: 100 MG, 3X/DAY (TID)
     Route: 048
     Dates: start: 201308
  2. TRAMADOL [Concomitant]
     Dosage: UNK

REACTIONS (4)
  - Pre-existing condition improved [Unknown]
  - Therapeutic response unexpected [Unknown]
  - Asthenia [Unknown]
  - Drug effect decreased [Unknown]
